FAERS Safety Report 9921091 (Version 2)
Quarter: 2015Q4

REPORT INFORMATION
  Report Type: Report from Study
  Country: US (occurrence: US)
  Receive Date: 20140225
  Receipt Date: 20151110
  Transmission Date: 20160305
  Serious: Yes (Other)
  Sender: FDA-Public Use
  Company Number: US-ROCHE-1332491

PATIENT
  Age: 56 Year
  Sex: Female

DRUGS (18)
  1. LUCENTIS [Suspect]
     Active Substance: RANIBIZUMAB
     Indication: DIABETIC RETINOPATHY
  2. TROPICAMIDE. [Concomitant]
     Active Substance: TROPICAMIDE
     Route: 065
  3. AVASTIN [Suspect]
     Active Substance: BEVACIZUMAB
     Indication: CATARACT NUCLEAR
  4. AVASTIN [Suspect]
     Active Substance: BEVACIZUMAB
     Indication: DIABETIC RETINOPATHY
  5. LUCENTIS [Suspect]
     Active Substance: RANIBIZUMAB
     Indication: CATARACT NUCLEAR
     Dosage: LEFT EYE
     Route: 050
  6. AVASTIN [Suspect]
     Active Substance: BEVACIZUMAB
     Indication: CUTIS LAXA
  7. AVASTIN [Suspect]
     Active Substance: BEVACIZUMAB
     Indication: DIABETIC RETINAL OEDEMA
     Route: 043
  8. DUREZOL [Concomitant]
     Active Substance: DIFLUPREDNATE
     Dosage: QD OD AT HS
     Route: 065
  9. PHENYLEPHRINE [Concomitant]
     Active Substance: PHENYLEPHRINE\PHENYLEPHRINE HYDROCHLORIDE
     Route: 065
  10. LUCENTIS [Suspect]
     Active Substance: RANIBIZUMAB
     Indication: CUTIS LAXA
  11. AVASTIN [Suspect]
     Active Substance: BEVACIZUMAB
     Indication: OCULAR HYPERTENSION
  12. ISTALOL [Concomitant]
     Active Substance: TIMOLOL MALEATE
     Dosage: 1/2% BID OD AT 0700
     Route: 065
  13. LUCENTIS [Suspect]
     Active Substance: RANIBIZUMAB
     Indication: DIABETIC RETINAL OEDEMA
     Dosage: OS
     Route: 050
  14. LUCENTIS [Suspect]
     Active Substance: RANIBIZUMAB
     Indication: OCULAR HYPERTENSION
  15. NEVANAC [Concomitant]
     Active Substance: NEPAFENAC
     Dosage: TID OD
     Route: 065
  16. AVASTIN [Suspect]
     Active Substance: BEVACIZUMAB
     Indication: INTRAOCULAR LENS IMPLANT
  17. BETOPTIC [Concomitant]
     Active Substance: BETAXOLOL HYDROCHLORIDE
     Indication: OCULAR HYPERTENSION
  18. LUCENTIS [Suspect]
     Active Substance: RANIBIZUMAB
     Indication: INTRAOCULAR LENS IMPLANT
     Dosage: 1 MG Q 5  TO 8 WEEK INTERVAL OS
     Route: 050

REACTIONS (4)
  - Visual impairment [Unknown]
  - Visual acuity reduced [Unknown]
  - Cystoid macular oedema [Unknown]
  - Macular oedema [Unknown]

NARRATIVE: CASE EVENT DATE: 20110601
